FAERS Safety Report 12255466 (Version 1)
Quarter: 2016Q2

REPORT INFORMATION
  Report Type: Spontaneous
  Country: ES (occurrence: ES)
  Receive Date: 20160412
  Receipt Date: 20160412
  Transmission Date: 20160815
  Serious: Yes (Hospitalization)
  Sender: FDA-Public Use
  Company Number: ES-ROCHE-1740361

PATIENT
  Age: 80 Year
  Sex: Female

DRUGS (11)
  1. HALOPERIDOL. [Concomitant]
     Active Substance: HALOPERIDOL
     Route: 048
     Dates: end: 20151207
  2. VILDAGLIPTINA [Concomitant]
     Indication: TYPE 2 DIABETES MELLITUS
     Route: 048
  3. LANTUS [Concomitant]
     Active Substance: INSULIN GLARGINE
     Route: 058
  4. URSOBILANE [Concomitant]
     Route: 048
  5. HIDROFEROL [Concomitant]
     Active Substance: CALCIFEDIOL
     Dosage: 0.266 MG
     Route: 048
  6. VALIUM [Suspect]
     Active Substance: DIAZEPAM
     Indication: PRODUCT USED FOR UNKNOWN INDICATION
     Dosage: STRENGTH 10 MG/2 ML, 6 AMPOULES OVER 24 HOURS
     Route: 042
     Dates: start: 2015, end: 20150207
  7. LACTULOSE. [Concomitant]
     Active Substance: LACTULOSE
     Route: 048
  8. FUROSEMIDA [Concomitant]
     Active Substance: FUROSEMIDE
     Route: 048
     Dates: end: 20151207
  9. PROPANOLOL [Concomitant]
     Active Substance: PROPRANOLOL HYDROCHLORIDE
     Route: 048
     Dates: end: 20151207
  10. RANITIDINE. [Concomitant]
     Active Substance: RANITIDINE
     Route: 048
  11. ESPIRONOLACTONA [Concomitant]
     Active Substance: SPIRONOLACTONE
     Route: 048
     Dates: end: 20151207

REACTIONS (1)
  - Hepatic encephalopathy [Recovered/Resolved]

NARRATIVE: CASE EVENT DATE: 20150207
